FAERS Safety Report 20430035 (Version 1)
Quarter: 2022Q1

REPORT INFORMATION
  Report Type: Report from Study
  Country: FR (occurrence: FR)
  Receive Date: 20220204
  Receipt Date: 20220204
  Transmission Date: 20220423
  Serious: Yes (Hospitalization)
  Sender: FDA-Public Use
  Company Number: FR-SERVIER-S19005586

PATIENT

DRUGS (6)
  1. ONCASPAR [Suspect]
     Active Substance: PEGASPARGASE
     Indication: Acute lymphocytic leukaemia
     Dosage: 2925 IU, ON D12
     Route: 042
     Dates: start: 20190224, end: 20190224
  2. DEXAMETHASONE [Suspect]
     Active Substance: DEXAMETHASONE
     Indication: Acute lymphocytic leukaemia
     Dosage: 7 MG QD, FROM D8 TO D22
     Route: 048
     Dates: start: 20190220, end: 20190306
  3. TN UNSPECIFIED [Concomitant]
     Indication: Acute lymphocytic leukaemia
     Dosage: 1.6 MG, ON D8, D15, D22
     Route: 042
     Dates: start: 20190220, end: 20190306
  4. TN UNSPECIFIED [Concomitant]
     Indication: Acute lymphocytic leukaemia
     Dosage: 15 MG, ON D1, D13
     Route: 037
     Dates: start: 20190225
  5. TN UNSPECIFIED [Concomitant]
     Indication: Acute lymphocytic leukaemia
     Dosage: 70 MG, QD, FROM D1 TO D7
     Route: 042
     Dates: start: 20190213, end: 20190219
  6. TN UNSPECIFIED [Concomitant]
     Indication: Hypothyroidism
     Dosage: 7 DROP, QD
     Route: 048

REACTIONS (1)
  - Insulin resistant diabetes [Recovered/Resolved]

NARRATIVE: CASE EVENT DATE: 20190306
